APPROVED DRUG PRODUCT: ACCUNEB
Active Ingredient: ALBUTEROL SULFATE
Strength: EQ 0.021% BASE **Federal Register determination that product was not discontinued or withdrawn for safety or effectiveness reasons**
Dosage Form/Route: SOLUTION;INHALATION
Application: N020949 | Product #002
Applicant: PHARMOBEDIENT CONSULTING LLC
Approved: Apr 30, 2001 | RLD: Yes | RS: No | Type: DISCN